FAERS Safety Report 11729963 (Version 1)
Quarter: 2015Q4

REPORT INFORMATION
  Report Type: Report from Study
  Country: DE (occurrence: CO)
  Receive Date: 20151112
  Receipt Date: 20151112
  Transmission Date: 20160304
  Serious: Yes (Death, Hospitalization, Other)
  Sender: FDA-Public Use
  Company Number: DE-ACTELION-A-US2015-127152

PATIENT
  Age: 65 Year
  Sex: Female

DRUGS (4)
  1. DOMPERIDON [Concomitant]
     Active Substance: DOMPERIDONE
     Dosage: UNK
     Dates: start: 201301
  2. FUROSEMIDA [Concomitant]
     Active Substance: FUROSEMIDE
     Dosage: UNK
     Dates: start: 201301
  3. VENTAVIS [Suspect]
     Active Substance: ILOPROST
     Indication: PULMONARY ARTERIAL HYPERTENSION
     Dosage: UNK
     Route: 055
     Dates: start: 20140314, end: 20151007
  4. OXYGEN. [Concomitant]
     Active Substance: OXYGEN

REACTIONS (12)
  - Abdominal pain [Not Recovered/Not Resolved]
  - Food intolerance [Not Recovered/Not Resolved]
  - Asphyxia [Not Recovered/Not Resolved]
  - Dyspnoea [Not Recovered/Not Resolved]
  - Duodenostomy [Not Recovered/Not Resolved]
  - Cyanosis [Unknown]
  - Pulmonary arterial hypertension [Not Recovered/Not Resolved]
  - Anaesthetic complication pulmonary [Fatal]
  - Speech disorder [Not Recovered/Not Resolved]
  - Oxygen supplementation [Not Recovered/Not Resolved]
  - Disease progression [Not Recovered/Not Resolved]
  - Flatulence [Unknown]

NARRATIVE: CASE EVENT DATE: 20140521
